FAERS Safety Report 17096924 (Version 1)
Quarter: 2020Q3

REPORT INFORMATION
  Report Type: Spontaneous
  Country: KR (occurrence: KR)
  Receive Date: 20191202
  Receipt Date: 20191202
  Transmission Date: 20201104
  Serious: Yes (Other)
  Sender: FDA-Public Use
  Company Number: KR-LUPIN PHARMACEUTICALS INC.-2019-07844

PATIENT
  Age: 28 Year
  Sex: Female

DRUGS (3)
  1. EPHEDRINE. [Suspect]
     Active Substance: EPHEDRINE
     Indication: WEIGHT INCREASED
     Dosage: UNK
     Route: 048
  2. AZOSEMIDE [Suspect]
     Active Substance: AZOSEMIDE
     Indication: WEIGHT INCREASED
     Dosage: UNK
     Route: 048
  3. TOPIRAMATE. [Suspect]
     Active Substance: TOPIRAMATE
     Indication: WEIGHT INCREASED
     Dosage: UNK
     Route: 048

REACTIONS (3)
  - Pseudomyopia [Recovering/Resolving]
  - Choroidal effusion [Recovering/Resolving]
  - Angle closure glaucoma [Recovered/Resolved]
